FAERS Safety Report 6496531-3 (Version None)
Quarter: 2009Q4

REPORT INFORMATION
  Report Type: 
  Country: None (occurrence: None)
  Receive Date: 20091210
  Receipt Date: 20091124
  Transmission Date: 20100525
  Serious: Yes (Life-Threatening, Disabling)
  Sender: FDA-Public Use
  Company Number: THQ2009A05123

PATIENT
  Age: 78 Year
  Sex: Male

DRUGS (11)
  1. LANSOPRAZOLE [Suspect]
     Indication: GASTROOESOPHAGEAL REFLUX DISEASE
     Dosage: 30 MG (30 MG, 1 IN 1 D); PER ORAL
     Route: 048
     Dates: start: 20090101, end: 20091105
  2. RAMIPRIL [Concomitant]
  3. ADALAT [Concomitant]
  4. ALBUTEROL [Concomitant]
  5. CODEINE PHOSPHATE AND ACETAMINOPHEN [Concomitant]
  6. ATORVASTATIN CALCIUM [Concomitant]
  7. QUINEN SULPHATE (QUININE SULFATE) [Concomitant]
  8. CLOPIDOGREL [Concomitant]
  9. ALLOPURINOL [Concomitant]
  10. THIAMINE [Concomitant]
  11. CALCICHEW-D3 FORTE (COLECALCIFEROL, CALCIUM CARBONATE) [Concomitant]

REACTIONS (9)
  - BLOOD CALCIUM DECREASED [None]
  - BLOOD MAGNESIUM DECREASED [None]
  - BLOOD POTASSIUM DECREASED [None]
  - DECREASED APPETITE [None]
  - FALL [None]
  - FATIGUE [None]
  - MUSCLE SPASMS [None]
  - PARAESTHESIA [None]
  - TETANY [None]
